FAERS Safety Report 5773526-6 (Version None)
Quarter: 2008Q2

REPORT INFORMATION
  Report Type: 
  Country: None (occurrence: None)
  Receive Date: 20080616
  Receipt Date: 20080603
  Transmission Date: 20081010
  Serious: Yes (Other)
  Sender: FDA-Public Use
  Company Number: US-ROCHE-568388

PATIENT
  Age: 17 Year
  Sex: Male

DRUGS (1)
  1. ISOTRETINOIN [Suspect]
     Indication: ACNE
     Dosage: THE PATIENT WAS DISPENSED ACCUTANE 10 MG ON 5 MARCH 2008
     Route: 065
     Dates: start: 20080305, end: 20080405

REACTIONS (1)
  - MENINGITIS ASEPTIC [None]
